FAERS Safety Report 5940196-3 (Version None)
Quarter: 2008Q4

REPORT INFORMATION
  Report Type: 
  Country: None (occurrence: None)
  Receive Date: 20081104
  Receipt Date: 20081027
  Transmission Date: 20090506
  Serious: Yes (Hospitalization)
  Sender: FDA-Public Use
  Company Number: US-AMGEN-QUU315714

PATIENT
  Sex: Female

DRUGS (2)
  1. ENBREL [Suspect]
     Indication: RHEUMATOID ARTHRITIS
     Route: 058
     Dates: start: 20050311
  2. PLAQUENIL [Concomitant]
     Route: 048

REACTIONS (4)
  - HERPES ZOSTER [None]
  - INJECTION SITE PAIN [None]
  - KNEE ARTHROPLASTY [None]
  - PROCEDURAL PAIN [None]
